FAERS Safety Report 9514422 (Version 1)
Quarter: 2013Q3

REPORT INFORMATION
  Report Type: Spontaneous
  Country: US (occurrence: US)
  Receive Date: 20130911
  Receipt Date: 20130911
  Transmission Date: 20140515
  Serious: No
  Sender: FDA-Public Use
  Company Number: US-BIOGENIDEC-2013BI082801

PATIENT
  Sex: Female

DRUGS (2)
  1. TYSABRI [Suspect]
     Indication: MULTIPLE SCLEROSIS
     Route: 042
     Dates: start: 20070716
  2. AVONEX [Concomitant]
     Indication: MULTIPLE SCLEROSIS
     Route: 030
     Dates: start: 20031103

REACTIONS (9)
  - Vein disorder [Recovered/Resolved]
  - Poor venous access [Recovered/Resolved]
  - Abasia [Recovered/Resolved]
  - Local swelling [Recovered/Resolved]
  - Pain [Recovered/Resolved]
  - Blood potassium abnormal [Unknown]
  - Drug interaction [Unknown]
  - Multiple sclerosis relapse [Recovered/Resolved]
  - Hypertension [Unknown]
